FAERS Safety Report 18065073 (Version 1)
Quarter: 2020Q3

REPORT INFORMATION
  Report Type: Spontaneous
  Country: US (occurrence: US)
  Receive Date: 20200724
  Receipt Date: 20200724
  Transmission Date: 20201103
  Serious: No
  Sender: FDA-Public Use
  Company Number: US-JNJFOC-20200724398

PATIENT
  Age: 59 Year
  Sex: Female
  Weight: 89.36 kg

DRUGS (1)
  1. ULTRAM [Suspect]
     Active Substance: TRAMADOL HYDROCHLORIDE
     Indication: PAIN MANAGEMENT
     Dosage: AS REQUIRED
     Route: 048
     Dates: start: 20191120

REACTIONS (2)
  - Constipation [Unknown]
  - Drug ineffective [Unknown]
